FAERS Safety Report 4386449-4 (Version None)
Quarter: 2004Q2

REPORT INFORMATION
  Report Type: 
  Country: None (occurrence: None)
  Receive Date: 20040625
  Receipt Date: 20040625
  Transmission Date: 20050107
  Serious: Yes (Death, Life-Threatening)
  Sender: FDA-Public Use
  Company Number: None

PATIENT
  Age: 65 Year
  Sex: Male

DRUGS (1)
  1. PROTAMINE SULFATE [Suspect]
     Indication: CORONARY ARTERY SURGERY
     Dosage: 250 MG IV
     Route: 042
     Dates: start: 20031027

REACTIONS (10)
  - ACIDOSIS [None]
  - ATRIAL FIBRILLATION [None]
  - CARDIAC ARREST [None]
  - CARDIAC FAILURE [None]
  - CEREBRAL ISCHAEMIA [None]
  - ENCEPHALOPATHY [None]
  - HYPOTENSION [None]
  - MYOCARDIAL INFARCTION [None]
  - VENTRICULAR FIBRILLATION [None]
  - VENTRICULAR TACHYCARDIA [None]
